FAERS Safety Report 17364892 (Version 3)
Quarter: 2022Q1

REPORT INFORMATION
  Report Type: Spontaneous
  Country: DK (occurrence: DK)
  Receive Date: 20200204
  Receipt Date: 20220316
  Transmission Date: 20220424
  Serious: Yes (Other)
  Sender: FDA-Public Use
  Company Number: DK-DKMA-ADR 21879624

PATIENT
  Age: 33 Year
  Sex: Male
  Weight: 90 kg

DRUGS (12)
  1. OLANZAPINE [Suspect]
     Active Substance: OLANZAPINE
     Indication: Product used for unknown indication
     Dosage: UNK
     Route: 065
  2. CLOZAPINE [Suspect]
     Active Substance: CLOZAPINE
     Indication: Psychotic disorder
     Dosage: DOSIS: TIDLIGERE 350 MG, 15FEB-14SEP2017 250 MG X 1 DGL, FRA 14SEP2017 200 MG X 1 DGL
     Route: 048
  3. RISPERDAL [Suspect]
     Active Substance: RISPERIDONE
     Indication: Product used for unknown indication
     Dosage: UNK
     Route: 065
     Dates: end: 2013
  4. SEROQUEL [Suspect]
     Active Substance: QUETIAPINE FUMARATE
     Indication: Mental disorder
     Dosage: 500 MILLIGRAM
     Route: 048
     Dates: start: 20050310
  5. ZELDOX [Suspect]
     Active Substance: ZIPRASIDONE
     Indication: Mental disorder
     Dosage: 20 MILLIGRAM
     Route: 048
     Dates: start: 2010, end: 2013
  6. ZYPREXA [Suspect]
     Active Substance: OLANZAPINE
     Indication: Product used for unknown indication
     Dosage: UNK
     Route: 065
  7. ABILIFY [Concomitant]
     Active Substance: ARIPIPRAZOLE
     Indication: Product used for unknown indication
     Dosage: UNK
     Route: 065
  8. ABILIFY [Concomitant]
     Active Substance: ARIPIPRAZOLE
     Dosage: UNK
     Route: 065
     Dates: start: 2014
  9. DELEPSINE [Concomitant]
     Active Substance: VALPROATE SODIUM
     Indication: Mania
     Dosage: DOSIS: 2,5 ML MORGEN OG 4 ML AFTEN.STYRKE: 200 MG/ML.
     Route: 048
     Dates: start: 20150202, end: 20170614
  10. DELEPSINE [Concomitant]
     Active Substance: VALPROATE SODIUM
     Dosage: DOSIS: 2,5 ML MORGEN OG 4 ML AFTEN.STYRKE: 200 MG/ML.
     Route: 048
     Dates: start: 20150717
  11. DELEPSINE [Concomitant]
     Active Substance: VALPROATE SODIUM
     Indication: Mood swings
     Dosage: STYRKE: 500 MG. DOSIS: 500 MG MORGEN, 1 G TIL NATTEN
     Route: 048
     Dates: start: 20150202, end: 20170614
  12. ESCITALOPRAM [Concomitant]
     Active Substance: ESCITALOPRAM OXALATE
     Indication: Product used for unknown indication
     Dosage: UNK
     Route: 065

REACTIONS (6)
  - Gender dysphoria [Unknown]
  - Erectile dysfunction [Not Recovered/Not Resolved]
  - Semen volume decreased [Unknown]
  - Homosexuality [Not Recovered/Not Resolved]
  - Feminisation acquired [Not Recovered/Not Resolved]
  - Sperm concentration decreased [Not Recovered/Not Resolved]
